FAERS Safety Report 4888050-2 (Version None)
Quarter: 2006Q1

REPORT INFORMATION
  Report Type: 
  Country: None (occurrence: None)
  Receive Date: 20060123
  Receipt Date: 20051005
  Transmission Date: 20060701
  Serious: Yes (Hospitalization, Disabling, Other)
  Sender: FDA-Public Use
  Company Number: US-MERCK-0510USA05504

PATIENT
  Age: 46 Year
  Sex: Female
  Weight: 105 kg

DRUGS (2)
  1. VIOXX [Suspect]
     Indication: ARTHRITIS
     Route: 048
     Dates: start: 20030101, end: 20030101
  2. HORMONES (UNSPECIFIED) [Concomitant]
     Route: 065

REACTIONS (5)
  - BACK PAIN [None]
  - CROHN'S DISEASE [None]
  - INFLUENZA [None]
  - PULMONARY EMBOLISM [None]
  - THROMBOSIS [None]
